FAERS Safety Report 6500137-7 (Version None)
Quarter: 2009Q4

REPORT INFORMATION
  Report Type: 
  Country: None (occurrence: None)
  Receive Date: 20091216
  Receipt Date: 20091204
  Transmission Date: 20100525
  Serious: Yes (Other)
  Sender: FDA-Public Use
  Company Number: SG-SANOFI-AVENTIS-2009SA006895

PATIENT
  Age: 77 Year
  Sex: Female

DRUGS (4)
  1. RIFAMPICIN [Suspect]
  2. ISONIAZID [Suspect]
  3. PYRAZINAMIDE [Suspect]
  4. ETHAMBUTOL HYDROCHLORIDE [Suspect]

REACTIONS (1)
  - JARISCH-HERXHEIMER REACTION [None]
